FAERS Safety Report 17368810 (Version 1)
Quarter: 2020Q1

REPORT INFORMATION
  Report Type: Spontaneous
  Country: US (occurrence: US)
  Receive Date: 20200204
  Receipt Date: 20200204
  Transmission Date: 20200409
  Serious: No
  Sender: FDA-Public Use
  Company Number: US-ELI_LILLY_AND_COMPANY-US201912005524

PATIENT
  Age: 62 Year
  Sex: Female

DRUGS (1)
  1. EMGALITY [Suspect]
     Active Substance: GALCANEZUMAB-GNLM
     Indication: MIGRAINE WITHOUT AURA
     Dosage: 120 MG, UNKNOWN
     Route: 065
     Dates: start: 20191206

REACTIONS (4)
  - Headache [Unknown]
  - Swelling face [Recovered/Resolved]
  - Swelling [Recovered/Resolved]
  - Underdose [Unknown]

NARRATIVE: CASE EVENT DATE: 20191206
